FAERS Safety Report 9306779 (Version 3)
Quarter: 2014Q2

REPORT INFORMATION
  Report Type: Report from Study
  Country: IL (occurrence: IL)
  Receive Date: 20130523
  Receipt Date: 20140404
  Transmission Date: 20141212
  Serious: Yes (Death, Life-Threatening, Hospitalization)
  Sender: FDA-Public Use
  Company Number: IL-CELGENEUS-082-C5013-13043720

PATIENT
  Age: 73 Year
  Sex: Female
  Weight: 118 kg

DRUGS (35)
  1. ACAMOL [Concomitant]
     Indication: PRODUCT USED FOR UNKNOWN INDICATION
     Route: 048
  2. BLINDED CC-5013 [Suspect]
     Indication: MYELODYSPLASTIC SYNDROME
     Dosage: 10 MILLIGRAM
     Route: 048
     Dates: start: 20130404, end: 20130504
  3. BLINDED CC-5013 [Suspect]
     Dosage: 5 MILLIGRAM
     Route: 048
     Dates: start: 20130501, end: 20130511
  4. ASPIRINE [Concomitant]
     Indication: MYOCARDIAL ISCHAEMIA
     Dosage: 100 MILLIGRAM
     Route: 048
     Dates: start: 201108
  5. FRUSEMIDE [Concomitant]
     Indication: HYPERTENSION
     Dosage: 80 MILLIGRAM
     Route: 048
     Dates: start: 201108
  6. FRUSEMIDE [Concomitant]
     Dosage: 120 MILLIGRAM
     Route: 048
  7. FRUSEMIDE [Concomitant]
     Route: 041
  8. SIMVASTATIN [Concomitant]
     Indication: HYPERCHOLESTEROLAEMIA
     Dosage: 40 MILLIGRAM
     Route: 048
     Dates: start: 2008
  9. METFORMIN [Concomitant]
     Indication: TYPE 2 DIABETES MELLITUS
     Dosage: 1700 MILLIGRAM
     Route: 048
     Dates: start: 2010
  10. LEVEMIR [Concomitant]
     Indication: TYPE 2 DIABETES MELLITUS
     Dosage: 300 IU (INTERNATIONAL UNIT)
     Route: 058
     Dates: start: 2010
  11. LEVEMIR [Concomitant]
     Dosage: 20 IU (INTERNATIONAL UNIT)
     Route: 058
     Dates: start: 2010
  12. ELTROXIN [Concomitant]
     Indication: HYPOTHYROIDISM
     Dosage: 50 MICROGRAM
     Route: 048
     Dates: start: 201108
  13. LOSEC [Concomitant]
     Indication: DYSPEPSIA
     Dosage: 20 MILLIGRAM
     Route: 048
     Dates: start: 201202
  14. SPASMEX [Concomitant]
     Indication: MICTURITION URGENCY
     Dosage: 30 MILLIGRAM
     Route: 048
  15. CONVERTIN [Concomitant]
     Indication: PRODUCT USED FOR UNKNOWN INDICATION
     Dosage: 5 MILLIGRAM
     Route: 065
  16. ACETYLCYSTEINE [Concomitant]
     Indication: PRODUCT USED FOR UNKNOWN INDICATION
     Dosage: 2400 MILLIGRAM
     Route: 065
  17. OXYCODONE [Concomitant]
     Indication: PRODUCT USED FOR UNKNOWN INDICATION
     Dosage: 10 TABLET
     Route: 048
  18. OXYCODONE [Concomitant]
     Route: 048
  19. OXAZEPAM [Concomitant]
     Indication: PRODUCT USED FOR UNKNOWN INDICATION
     Dosage: 20 MILLIGRAM
     Route: 048
  20. FLUTICASONE PROPIONATE [Concomitant]
     Indication: PRODUCT USED FOR UNKNOWN INDICATION
     Dosage: 1 MICROGRAM
     Route: 055
  21. AEROVENT [Concomitant]
     Indication: PRODUCT USED FOR UNKNOWN INDICATION
     Dosage: 4 MILLIGRAM
     Route: 065
  22. TRAMADOL HYDROCHLORIDE [Concomitant]
     Indication: PRODUCT USED FOR UNKNOWN INDICATION
     Dosage: 400 MILLIGRAM
     Route: 048
  23. TRAMADOL HYDROCHLORIDE [Concomitant]
     Route: 048
  24. DIPYRONE [Concomitant]
     Indication: PRODUCT USED FOR UNKNOWN INDICATION
     Dosage: 4 MILLIGRAM
     Route: 048
  25. DIPYRONE [Concomitant]
     Route: 048
  26. DIPYRONE [Concomitant]
     Route: 048
  27. HALOPERIDOL [Concomitant]
     Indication: PRODUCT USED FOR UNKNOWN INDICATION
     Dosage: 10 DROPS
     Route: 048
  28. HALOPERIDOL [Concomitant]
     Route: 048
  29. SODIUM CHLORIDE [Concomitant]
     Indication: PRODUCT USED FOR UNKNOWN INDICATION
     Route: 041
  30. DEXTROSE [Concomitant]
     Indication: PRODUCT USED FOR UNKNOWN INDICATION
     Route: 041
  31. DEXTROSE [Concomitant]
     Route: 041
  32. PROTHIAZINE [Concomitant]
     Indication: PRODUCT USED FOR UNKNOWN INDICATION
     Route: 030
  33. APIDRA [Concomitant]
     Indication: PRODUCT USED FOR UNKNOWN INDICATION
     Route: 058
  34. PETHIDINE HYDROCHLORIDE [Concomitant]
     Indication: PRODUCT USED FOR UNKNOWN INDICATION
     Route: 030
  35. STUNARONE [Concomitant]
     Indication: PRODUCT USED FOR UNKNOWN INDICATION
     Dosage: 50 MILLIGRAM
     Route: 048

REACTIONS (2)
  - Skin ulcer [Not Recovered/Not Resolved]
  - Neutropenic sepsis [Fatal]
